FAERS Safety Report 5934577-1 (Version None)
Quarter: 2008Q4

REPORT INFORMATION
  Report Type: 
  Country: None (occurrence: None)
  Receive Date: 20081029
  Receipt Date: 20081017
  Transmission Date: 20090506
  Serious: Yes (Hospitalization)
  Sender: FDA-Public Use
  Company Number: JP-PFIZER INC-2008080600

PATIENT
  Sex: Male
  Weight: 57 kg

DRUGS (12)
  1. SUTENT [Suspect]
     Indication: RENAL CELL CARCINOMA
     Route: 048
     Dates: start: 20080811
  2. EVIPROSTAT [Concomitant]
     Route: 048
  3. HARNAL [Concomitant]
     Route: 048
  4. DEPAS [Concomitant]
     Route: 048
  5. LENDORMIN [Concomitant]
     Route: 048
  6. NU LOTAN [Concomitant]
     Route: 048
  7. LIPITOR [Concomitant]
     Route: 048
  8. MARZULENE S [Concomitant]
     Route: 048
  9. MUCODYNE [Concomitant]
     Route: 048
  10. NAIXAN [Concomitant]
     Route: 048
     Dates: start: 20080818
  11. LOXONIN [Concomitant]
     Route: 048
  12. POSTERISAN FORTE [Concomitant]
     Route: 062

REACTIONS (1)
  - PNEUMOTHORAX [None]
